FAERS Safety Report 6786311-3 (Version None)
Quarter: 2010Q2

REPORT INFORMATION
  Report Type: 
  Country: None (occurrence: None)
  Receive Date: 20100623
  Receipt Date: 20100615
  Transmission Date: 20101027
  Serious: Yes (Hospitalization)
  Sender: FDA-Public Use
  Company Number: GXKR2010JP06659

PATIENT
  Age: 70 Year
  Sex: Female

DRUGS (8)
  1. AMLODIPINE [Suspect]
     Indication: HYPERTENSION
     Dosage: 2.5 MG/DAY
     Route: 048
     Dates: end: 20100615
  2. ASPIRIN [Suspect]
     Dosage: 100 MG/DAY
     Route: 048
     Dates: end: 20100608
  3. HACHIMIJIO-GAN [Suspect]
     Dosage: 5 G/DAY
     Route: 048
     Dates: end: 20100608
  4. MEDIPEACE [Suspect]
     Dosage: 0.5 MG/DAY
     Route: 048
     Dates: end: 20100608
  5. LOXONIN [Suspect]
     Dosage: UNK
     Route: 062
  6. PRAVASTATIN [Concomitant]
     Dosage: 10 MG, UNK
     Route: 048
  7. GOODMIN [Concomitant]
     Dosage: 0.25 MG, UNK
     Route: 048
  8. EVISTA [Concomitant]
     Dosage: 60 MG, UNK
     Route: 048

REACTIONS (1)
  - INTERSTITIAL LUNG DISEASE [None]
